FAERS Safety Report 16312121 (Version 1)
Quarter: 2019Q2

REPORT INFORMATION
  Report Type: Spontaneous
  Country: JP (occurrence: JP)
  Receive Date: 20190515
  Receipt Date: 20190515
  Transmission Date: 20190711
  Serious: Yes (Hospitalization)
  Sender: FDA-Public Use
  Company Number: JP-TEVA-2019-JP-1049530

PATIENT
  Age: 68 Year
  Sex: Female

DRUGS (2)
  1. PREDNISOLONE. [Suspect]
     Active Substance: PREDNISOLONE
     Indication: SYSTEMIC SCLERODERMA
     Dosage: 20 MILLIGRAM DAILY;
     Route: 065
  2. ENALAPRIL [Concomitant]
     Active Substance: ENALAPRIL
     Indication: PRODUCT USED FOR UNKNOWN INDICATION
     Dosage: 5 MILLIGRAM DAILY;
     Route: 065

REACTIONS (7)
  - Haematoma [Unknown]
  - Hypotension [Recovered/Resolved]
  - Scleroderma renal crisis [Recovering/Resolving]
  - Back pain [Unknown]
  - Aneurysm ruptured [Unknown]
  - Chest pain [Unknown]
  - Peritoneal haemorrhage [Unknown]
